FAERS Safety Report 11981944 (Version 2)
Quarter: 2016Q1

REPORT INFORMATION
  Report Type: Spontaneous
  Country: CA (occurrence: CA)
  Receive Date: 20160201
  Receipt Date: 20160203
  Transmission Date: 20160526
  Serious: Yes (Hospitalization, Disabling)
  Sender: FDA-Public Use
  Company Number: CA-009507513-1601CAN011062

PATIENT
  Age: 59 Year
  Sex: Female

DRUGS (2)
  1. POSANOL [Suspect]
     Active Substance: POSACONAZOLE
     Indication: MYELODYSPLASTIC SYNDROME
     Dosage: 300 MG, DAILY
     Route: 048
     Dates: end: 201601
  2. POSANOL [Suspect]
     Active Substance: POSACONAZOLE
     Dosage: 300 MG, DAILY
     Route: 048
     Dates: start: 201601

REACTIONS (4)
  - Movement disorder [Unknown]
  - Clostridium difficile infection [Unknown]
  - Drug dose omission [Unknown]
  - Product use issue [Unknown]

NARRATIVE: CASE EVENT DATE: 201512
